FAERS Safety Report 23321015 (Version 1)
Quarter: 2023Q4

REPORT INFORMATION
  Report Type: Spontaneous
  Country: CA (occurrence: CA)
  Receive Date: 20231220
  Receipt Date: 20231220
  Transmission Date: 20240109
  Serious: Yes (Other)
  Sender: FDA-Public Use
  Company Number: CA-FreseniusKabi-FK202320666

PATIENT
  Age: 72 Year
  Sex: Female

DRUGS (6)
  1. FOLIC ACID [Suspect]
     Active Substance: FOLIC ACID
     Indication: Product used for unknown indication
     Dosage: DOSAGE FORM: NOT SPECIFIED
     Route: 065
  2. AMOXICILLIN [Suspect]
     Active Substance: AMOXICILLIN
     Indication: Product used for unknown indication
     Dosage: FORM OF ADMIN.- NOT SPECIFIED
  3. CELEBREX [Concomitant]
     Active Substance: CELECOXIB
     Indication: Product used for unknown indication
     Dosage: FORM OF ADMIN.- CAPSULES?ROUTE OF ADMIN.- ORAL
  4. METHOTREXATE [Concomitant]
     Active Substance: METHOTREXATE
     Indication: Product used for unknown indication
     Dosage: FORM OF ADMIN.- NOT SPECIFIED?ROUTE OF ADMIN.- ORAL
  5. NAPROXEN SODIUM [Concomitant]
     Active Substance: NAPROXEN\NAPROXEN SODIUM
     Indication: Product used for unknown indication
     Dosage: FORM OF ADMIN.- NOT SPECIFIED?ROUTE OF ADMIN.- ORAL
  6. PREDNISONE [Concomitant]
     Active Substance: PREDNISONE
     Indication: Product used for unknown indication
     Dosage: FORM OF ADMIN.- NOT SPECIFIED?ROUTE OF ADMIN.- UNKNOWN

REACTIONS (2)
  - Cardiomegaly [Unknown]
  - Psoriatic arthropathy [Unknown]
